FAERS Safety Report 5196370-X (Version None)
Quarter: 2006Q4

REPORT INFORMATION
  Report Type: 
  Country: None (occurrence: None)
  Receive Date: 20061222
  Receipt Date: 20061207
  Transmission Date: 20070319
  Serious: Yes (Other)
  Sender: FDA-Public Use
  Company Number: AZAES200600476

PATIENT
  Age: 73 Year
  Sex: Male
  Weight: 76 kg

DRUGS (6)
  1. AZACITIDINE (AZACITIDINE) [Suspect]
     Indication: MYELODYSPLASTIC SYNDROME
     Dosage: 75 MG/M2  (DAILY X 7 DAYS), SUBCUTANEOUS
     Route: 058
     Dates: start: 20061003, end: 20061009
  2. VORICONAZOLE [Concomitant]
  3. FLURAZEPAM [Concomitant]
  4. FLUOXETINE [Concomitant]
  5. METAMIZOLE [Concomitant]
  6. FUROSEMIDE [Concomitant]

REACTIONS (3)
  - DIARRHOEA HAEMORRHAGIC [None]
  - GASTROINTESTINAL FUNGAL INFECTION [None]
  - MUCORMYCOSIS [None]
